FAERS Safety Report 13273761 (Version 3)
Quarter: 2017Q1

REPORT INFORMATION
  Report Type: Spontaneous
  Country: US (occurrence: US)
  Receive Date: 20170227
  Receipt Date: 20170331
  Transmission Date: 20170428
  Serious: Yes (Other)
  Sender: FDA-Public Use
  Company Number: US-PFIZER INC-2017036746

PATIENT
  Age: 65 Year
  Sex: Female
  Weight: 93 kg

DRUGS (1)
  1. PREMARIN [Suspect]
     Active Substance: ESTROGENS, CONJUGATED
     Indication: ALOPECIA
     Dosage: 1 G, DAILY
     Route: 067
     Dates: start: 20170112

REACTIONS (4)
  - Product use issue [Unknown]
  - Vaginal haemorrhage [Recovered/Resolved]
  - Abdominal pain [Recovered/Resolved]
  - Bartholin^s abscess [Recovered/Resolved]

NARRATIVE: CASE EVENT DATE: 20170112
